FAERS Safety Report 7765286-4 (Version None)
Quarter: 2011Q3

REPORT INFORMATION
  Report Type: 
  Country: None (occurrence: None)
  Receive Date: 20110916
  Receipt Date: 20110902
  Transmission Date: 20111222
  Serious: Yes (Hospitalization, Other)
  Sender: FDA-Public Use
  Company Number: 2010MA002238

PATIENT
  Sex: Female
  Weight: 106.5953 kg

DRUGS (24)
  1. ATENOLOL [Concomitant]
  2. CEPHALEXIN [Concomitant]
  3. OXYBUTYNIN [Concomitant]
  4. SIMVASTATIN [Concomitant]
  5. LANTUS + HUMALOG [Concomitant]
  6. AMOXICILLIN [Concomitant]
  7. LISINOPRIL [Concomitant]
  8. OMEPRAZOLE [Concomitant]
  9. AVAPRO [Concomitant]
  10. ASPIRIN [Concomitant]
  11. BENICAR [Concomitant]
  12. PRILOSEC [Concomitant]
  13. METHIMAZOLE [Concomitant]
  14. METOCLOPRAMIDE [Suspect]
     Indication: IMPAIRED GASTRIC EMPTYING
     Dosage: 10 MG;QID;PO
     Route: 048
     Dates: start: 20041130, end: 20091201
  15. METOCLOPRAMIDE [Suspect]
     Indication: GASTROOESOPHAGEAL REFLUX DISEASE
     Dosage: 10 MG;QID;PO
     Route: 048
     Dates: start: 20041130, end: 20091201
  16. HYDROCODONE BITARTRATE AND ACETAMINOPHEN [Concomitant]
  17. NORVASC [Concomitant]
  18. FUROSEMIDE [Concomitant]
  19. ISOSORBIDE DINITRATE [Concomitant]
  20. METFORMIN HCL [Concomitant]
  21. POTASSIUM [Concomitant]
  22. SULFAMETHOXAZOLE [Concomitant]
  23. DETROL [Concomitant]
  24. PROPOXYPHENE HCL AND ACETAMINOPHEN [Concomitant]

REACTIONS (61)
  - NERVOUSNESS [None]
  - FLUID OVERLOAD [None]
  - SOMNOLENCE [None]
  - ARTHRALGIA [None]
  - GAIT DISTURBANCE [None]
  - LEFT VENTRICULAR HYPERTROPHY [None]
  - OEDEMA PERIPHERAL [None]
  - LARYNGEAL MASS [None]
  - BUNDLE BRANCH BLOCK LEFT [None]
  - ECONOMIC PROBLEM [None]
  - TYPE 2 DIABETES MELLITUS [None]
  - GOITRE [None]
  - MYOCLONUS [None]
  - ABDOMINAL DISCOMFORT [None]
  - DIABETIC RETINOPATHY [None]
  - REFUSAL OF TREATMENT BY PATIENT [None]
  - HEMIPARESIS [None]
  - ANXIETY [None]
  - CONSTIPATION [None]
  - DIZZINESS [None]
  - FALL [None]
  - HEADACHE [None]
  - SINUS TACHYCARDIA [None]
  - PARAESTHESIA [None]
  - NEUROPATHY PERIPHERAL [None]
  - ABDOMINAL DISTENSION [None]
  - DEPRESSION [None]
  - APALLIC SYNDROME [None]
  - HYPERLIPIDAEMIA [None]
  - VOCAL CORD THICKENING [None]
  - HYPERTENSION [None]
  - SOMATOFORM DISORDER [None]
  - URINARY INCONTINENCE [None]
  - MALOCCLUSION [None]
  - STEREOTYPY [None]
  - EMOTIONAL DISORDER [None]
  - HYPOAESTHESIA [None]
  - OEDEMA [None]
  - JAW DISORDER [None]
  - STRESS [None]
  - DYSPNOEA [None]
  - ATRIOVENTRICULAR BLOCK FIRST DEGREE [None]
  - TARDIVE DYSKINESIA [None]
  - CONVERSION DISORDER [None]
  - URINARY TRACT INFECTION [None]
  - IRON DEFICIENCY [None]
  - NON-CARDIAC CHEST PAIN [None]
  - DYSKINESIA [None]
  - OBESITY [None]
  - SLEEP APNOEA SYNDROME [None]
  - CONVULSION [None]
  - CAROTID ARTERY STENOSIS [None]
  - NASAL SEPTUM DEVIATION [None]
  - ABNORMAL BEHAVIOUR [None]
  - EXTRAPYRAMIDAL DISORDER [None]
  - MYALGIA [None]
  - TREMOR [None]
  - MUSCLE SPASMS [None]
  - GASTROOESOPHAGEAL REFLUX DISEASE [None]
  - AMNESIA [None]
  - OSTEOPOROSIS [None]
